FAERS Safety Report 20006501 (Version 1)
Quarter: 2021Q4

REPORT INFORMATION
  Report Type: Spontaneous
  Country: US (occurrence: US)
  Receive Date: 20211028
  Receipt Date: 20211028
  Transmission Date: 20220303
  Serious: Yes (Other)
  Sender: FDA-Public Use
  Company Number: None

PATIENT
  Age: 21 Year
  Sex: Male

DRUGS (1)
  1. DUPIXENT [Suspect]
     Active Substance: DUPILUMAB
     Indication: Eczema
     Dosage: ?          OTHER FREQUENCY:EVERY 2 WEEKS;
     Route: 058

REACTIONS (4)
  - Ocular hyperaemia [None]
  - Eye irritation [None]
  - Dermatitis [None]
  - Pain of skin [None]

NARRATIVE: CASE EVENT DATE: 20211020
